FAERS Safety Report 24636973 (Version 2)
Quarter: 2025Q1

REPORT INFORMATION
  Report Type: Spontaneous
  Country: US (occurrence: US)
  Receive Date: 20241119
  Receipt Date: 20250128
  Transmission Date: 20250409
  Serious: Yes (Hospitalization)
  Sender: CATALYST PHARMA
  Company Number: US-CATALYST PHARMACEUTICALS, INC-US-CATA-24-01325

PATIENT
  Age: 52 Year
  Sex: Female
  Weight: 87.982 kg

DRUGS (2)
  1. FIRDAPSE [Suspect]
     Active Substance: AMIFAMPRIDINE PHOSPHATE
     Indication: Myasthenic syndrome
     Dosage: 70 MG DAILY (7 TABLETS DAILY)
     Route: 048
     Dates: start: 20190517
  2. FIRDAPSE [Suspect]
     Active Substance: AMIFAMPRIDINE PHOSPHATE
     Dosage: 2 TABLETS 4 TIMES PER DAY (80 MG)
     Route: 048
     Dates: start: 20221123

REACTIONS (4)
  - Diverticulitis [Unknown]
  - Condition aggravated [Unknown]
  - Diverticulitis [Unknown]
  - Condition aggravated [Unknown]

NARRATIVE: CASE EVENT DATE: 20241027
